FAERS Safety Report 12089642 (Version 1)
Quarter: 2016Q1

REPORT INFORMATION
  Report Type: Spontaneous
  Country: CN (occurrence: CN)
  Receive Date: 20160218
  Receipt Date: 20160218
  Transmission Date: 20160526
  Serious: Yes (Other)
  Sender: FDA-Public Use
  Company Number: PHHY2016CN020729

PATIENT
  Age: 26 Year
  Sex: Male

DRUGS (1)
  1. TELBIVUDINE [Suspect]
     Active Substance: TELBIVUDINE
     Indication: CHRONIC HEPATITIS B
     Dosage: 600 MG, QD
     Route: 065

REACTIONS (8)
  - Neuralgia [Unknown]
  - Renal impairment [Not Recovered/Not Resolved]
  - Metabolic acidosis [Unknown]
  - Acute kidney injury [Unknown]
  - Hypoaesthesia [Unknown]
  - Rhabdomyolysis [Unknown]
  - Myalgia [Not Recovered/Not Resolved]
  - Muscular weakness [Not Recovered/Not Resolved]
